FAERS Safety Report 20950828 (Version 2)
Quarter: 2023Q4

REPORT INFORMATION
  Report Type: Spontaneous
  Country: CN (occurrence: CN)
  Receive Date: 20220613
  Receipt Date: 20231006
  Transmission Date: 20240110
  Serious: Yes (Other)
  Sender: FDA-Public Use
  Company Number: CN-BAYER-2022A081728

PATIENT
  Age: 65 Year
  Sex: Male
  Weight: 65 kg

DRUGS (2)
  1. ULTRAVIST [Suspect]
     Active Substance: IOPROMIDE
     Indication: Respiratory failure
     Dosage: 75 ML, ONCE
     Route: 041
     Dates: start: 20220530, end: 20220530
  2. ULTRAVIST [Suspect]
     Active Substance: IOPROMIDE
     Indication: Imaging procedure

REACTIONS (3)
  - Loss of consciousness [Recovering/Resolving]
  - Peripheral coldness [Recovering/Resolving]
  - Incorrect drug administration rate [None]

NARRATIVE: CASE EVENT DATE: 20220530
